FAERS Safety Report 20301764 (Version 1)
Quarter: 2022Q1

REPORT INFORMATION
  Report Type: Spontaneous
  Country: CN (occurrence: CN)
  Receive Date: 20220105
  Receipt Date: 20220105
  Transmission Date: 20220424
  Serious: Yes (Other)
  Sender: FDA-Public Use
  Company Number: CN-JNJFOC-20211255935

PATIENT
  Sex: Female

DRUGS (1)
  1. OPSUMIT [Suspect]
     Active Substance: MACITENTAN
     Indication: Pulmonary arterial hypertension
     Route: 048

REACTIONS (5)
  - Right-to-left cardiac shunt [Unknown]
  - Atrial septal defect [Unknown]
  - Exposure during pregnancy [Unknown]
  - Contraindicated product administered [Unknown]
  - Off label use [Unknown]
